FAERS Safety Report 8831227 (Version 1)
Quarter: 2012Q4

REPORT INFORMATION
  Report Type: Report from Study
  Country: CO (occurrence: CO)
  Receive Date: 20121008
  Receipt Date: 20121008
  Transmission Date: 20130627
  Serious: Yes (Hospitalization)
  Sender: FDA-Public Use
  Company Number: CO-ASTELLAS-2012US009751

PATIENT
  Age: 53 Year
  Sex: Female

DRUGS (1)
  1. ERLOTINIB TABLET [Suspect]
     Indication: LUNG NEOPLASM MALIGNANT
     Dosage: 150 mg, UID/QD
     Route: 048
     Dates: start: 20120423

REACTIONS (3)
  - Pleural effusion [Recovering/Resolving]
  - Hepatic vein thrombosis [Recovering/Resolving]
  - Escherichia sepsis [Recovering/Resolving]
